FAERS Safety Report 17238113 (Version 2)
Quarter: 2020Q4

REPORT INFORMATION
  Report Type: Spontaneous
  Country: US (occurrence: US)
  Receive Date: 20200106
  Receipt Date: 20201220
  Transmission Date: 20210113
  Serious: Yes (Hospitalization)
  Sender: FDA-Public Use
  Company Number: US-PACIRA-201900284

PATIENT
  Age: 62 Year

DRUGS (2)
  1. BUPIVACAINE. [Suspect]
     Active Substance: BUPIVACAINE
     Indication: PULMONARY RESECTION
     Dosage: 20 ML
     Dates: start: 20190822, end: 20190822
  2. EXPAREL [Suspect]
     Active Substance: BUPIVACAINE
     Indication: PULMONARY RESECTION
     Dosage: 266 MG/20 ML
     Dates: start: 20190822, end: 20190822

REACTIONS (1)
  - Seizure [Recovered/Resolved]

NARRATIVE: CASE EVENT DATE: 20190822
